FAERS Safety Report 20345095 (Version 2)
Quarter: 2022Q2

REPORT INFORMATION
  Report Type: Other
  Country: JP (occurrence: None)
  Receive Date: 20220118
  Receipt Date: 20220419
  Transmission Date: 20220721
  Serious: Yes (Life-Threatening, Disabling)
  Sender: FDA-Public Use
  Company Number: JP-ROCHE-3002466

PATIENT
  Age: 43 Year
  Sex: Female
  Weight: 59 kg

DRUGS (35)
  1. RITUXIMAB [Suspect]
     Active Substance: RITUXIMAB
     Indication: Liver transplant rejection
     Route: 041
     Dates: start: 20171023, end: 20171023
  2. POLARAMINE [Concomitant]
     Active Substance: DEXCHLORPHENIRAMINE MALEATE
     Route: 042
     Dates: start: 20171023, end: 20171023
  3. DEXAMETHASONE SODIUM PHOSPHATE [Concomitant]
     Active Substance: DEXAMETHASONE SODIUM PHOSPHATE
     Route: 042
     Dates: start: 20171023, end: 20171023
  4. PREDONINE [Concomitant]
     Active Substance: PREDNISOLONE
     Dosage: SUBSEQUENT DOSE RECEIVED FROM 22-NOV-2017 TO 29-NOV-2017
     Route: 048
     Dates: start: 20171114, end: 20171116
  5. PREDONINE [Concomitant]
     Active Substance: PREDNISOLONE
     Route: 048
     Dates: start: 20171130, end: 20171208
  6. PREDONINE [Concomitant]
     Active Substance: PREDNISOLONE
     Route: 048
     Dates: start: 20171209, end: 20171228
  7. PREDONINE [Concomitant]
     Active Substance: PREDNISOLONE
     Route: 048
     Dates: start: 20171229, end: 20180222
  8. PREDONINE [Concomitant]
     Active Substance: PREDNISOLONE
     Route: 048
     Dates: start: 20180223, end: 20190913
  9. MYCOPHENOLATE MOFETIL [Concomitant]
     Active Substance: MYCOPHENOLATE MOFETIL
     Route: 048
     Dates: start: 20171107, end: 20171124
  10. MYCOPHENOLATE MOFETIL [Concomitant]
     Active Substance: MYCOPHENOLATE MOFETIL
     Route: 048
     Dates: start: 20171125, end: 20180103
  11. MYCOPHENOLATE MOFETIL [Concomitant]
     Active Substance: MYCOPHENOLATE MOFETIL
     Route: 048
     Dates: start: 20180104
  12. PIPERACILLIN SODIUM [Concomitant]
     Active Substance: PIPERACILLIN SODIUM
     Route: 042
     Dates: start: 20171106, end: 20171110
  13. FLUMARIN (JAPAN) [Concomitant]
     Route: 042
     Dates: start: 20171106, end: 20171110
  14. GABEXATE MESYLATE [Concomitant]
     Active Substance: GABEXATE MESYLATE
     Route: 042
     Dates: start: 20171111, end: 20171114
  15. LEVOFLOXACIN [Concomitant]
     Active Substance: LEVOFLOXACIN
     Route: 042
     Dates: start: 20171117, end: 20171120
  16. CANCIDAS [Concomitant]
     Active Substance: CASPOFUNGIN ACETATE
     Route: 042
     Dates: start: 20171129, end: 20171208
  17. TACROLIMUS [Concomitant]
     Active Substance: TACROLIMUS
     Route: 048
     Dates: start: 20171105, end: 20171106
  18. TACROLIMUS [Concomitant]
     Active Substance: TACROLIMUS
     Route: 048
     Dates: start: 20171117, end: 20171123
  19. TACROLIMUS [Concomitant]
     Active Substance: TACROLIMUS
     Route: 048
     Dates: start: 20171124, end: 20171130
  20. TACROLIMUS [Concomitant]
     Active Substance: TACROLIMUS
     Route: 048
     Dates: start: 20171201, end: 20171202
  21. TACROLIMUS [Concomitant]
     Active Substance: TACROLIMUS
     Route: 048
     Dates: start: 20171203, end: 20171203
  22. TACROLIMUS [Concomitant]
     Active Substance: TACROLIMUS
     Route: 048
     Dates: start: 20171204, end: 20171208
  23. TACROLIMUS [Concomitant]
     Active Substance: TACROLIMUS
     Route: 048
     Dates: start: 20171210, end: 20171211
  24. TACROLIMUS [Concomitant]
     Active Substance: TACROLIMUS
     Route: 048
     Dates: start: 20171212, end: 20171213
  25. TACROLIMUS [Concomitant]
     Active Substance: TACROLIMUS
     Route: 048
     Dates: start: 20171214, end: 20171222
  26. TACROLIMUS [Concomitant]
     Active Substance: TACROLIMUS
     Route: 048
     Dates: start: 20171223, end: 20180103
  27. TACROLIMUS [Concomitant]
     Active Substance: TACROLIMUS
     Route: 048
     Dates: start: 20180105, end: 20180109
  28. TACROLIMUS [Concomitant]
     Active Substance: TACROLIMUS
     Route: 048
     Dates: start: 20180112, end: 20180119
  29. TACROLIMUS [Concomitant]
     Active Substance: TACROLIMUS
     Route: 048
     Dates: start: 20180120, end: 20180205
  30. TACROLIMUS [Concomitant]
     Active Substance: TACROLIMUS
     Route: 048
     Dates: start: 20180207
  31. TACROLIMUS [Concomitant]
     Active Substance: TACROLIMUS
     Route: 042
     Dates: start: 20171106, end: 20171107
  32. TACROLIMUS [Concomitant]
     Active Substance: TACROLIMUS
     Route: 042
     Dates: start: 20171107, end: 20171108
  33. TACROLIMUS [Concomitant]
     Active Substance: TACROLIMUS
     Route: 042
     Dates: start: 20171108, end: 20171111
  34. TACROLIMUS [Concomitant]
     Active Substance: TACROLIMUS
     Route: 042
     Dates: start: 20171111, end: 20171114
  35. TACROLIMUS [Concomitant]
     Active Substance: TACROLIMUS
     Route: 042
     Dates: start: 20171115, end: 20171117

REACTIONS (2)
  - Portal vein thrombosis [Recovering/Resolving]
  - Transplant rejection [Recovering/Resolving]

NARRATIVE: CASE EVENT DATE: 20171113
